FAERS Safety Report 20690445 (Version 2)
Quarter: 2022Q2

REPORT INFORMATION
  Report Type: Report from Study
  Country: US (occurrence: US)
  Receive Date: 20220408
  Receipt Date: 20220504
  Transmission Date: 20220721
  Serious: Yes (Other)
  Sender: FDA-Public Use
  Company Number: US-ORGANON-O2204USA000579

PATIENT
  Sex: Female
  Weight: 95.238 kg

DRUGS (1)
  1. IMPLANON [Suspect]
     Active Substance: ETONOGESTREL
     Indication: Contraception
     Dosage: 68 MG, 1 IMPLANT IN RIGHT ARM
     Route: 059
     Dates: start: 20220314, end: 20220404

REACTIONS (5)
  - Device dislocation [Recovered/Resolved]
  - Medical device discomfort [Unknown]
  - Device placement issue [Recovered/Resolved]
  - Pain [Unknown]
  - Implant site pain [Unknown]

NARRATIVE: CASE EVENT DATE: 20220101
